FAERS Safety Report 4851206-9 (Version None)
Quarter: 2005Q4

REPORT INFORMATION
  Report Type: 
  Country: None (occurrence: None)
  Receive Date: 20051208
  Receipt Date: 20051130
  Transmission Date: 20060501
  Serious: Yes (Death)
  Sender: FDA-Public Use
  Company Number: 219970

PATIENT
  Age: 54 Year
  Sex: Male

DRUGS (8)
  1. EFALIZUMAB(EFALIZUMAB) PWDR + SOLVENT, INJECTION SOLN, 125MG [Suspect]
     Indication: PSORIASIS
     Dosage: 1/WEEK, SUBCUTANEOUS
     Route: 058
     Dates: end: 20050811
  2. TOPROL-XL [Concomitant]
  3. HYZAAR [Concomitant]
  4. ASPIRIN [Concomitant]
  5. POTASSIUM (POTASSIUM  NOS) [Concomitant]
  6. LASIX [Concomitant]
  7. MAGNESIUM OXIDE (MAGNESIUM OXIDE) [Concomitant]
  8. TOPICAL STEROID NOS (TOPICAL STEROID NOS) [Concomitant]

REACTIONS (1)
  - DEATH [None]
